FAERS Safety Report 7135933-9 (Version None)
Quarter: 2010Q4

REPORT INFORMATION
  Report Type: 
  Country: None (occurrence: None)
  Receive Date: 20101204
  Receipt Date: 20101105
  Transmission Date: 20110411
  Serious: Yes (Other)
  Sender: FDA-Public Use
  Company Number: US-BAYER-201019666NA

PATIENT

DRUGS (2)
  1. YAZ [Suspect]
     Route: 048
     Dates: start: 20070101, end: 20080101
  2. YASMIN [Suspect]
     Route: 048
     Dates: start: 20070101, end: 20080101

REACTIONS (1)
  - CHOLECYSTECTOMY [None]
